FAERS Safety Report 4706897-X (Version None)
Quarter: 2005Q3

REPORT INFORMATION
  Report Type: 
  Country: None (occurrence: None)
  Receive Date: 20050701
  Receipt Date: 20050622
  Transmission Date: 20060218
  Serious: Yes (Hospitalization, Other)
  Sender: FDA-Public Use
  Company Number: HQWYE618822JUN05

PATIENT
  Age: 62 Year
  Sex: Female

DRUGS (1)
  1. ZOSYN [Suspect]
     Indication: GANGRENE
     Dates: start: 20050423

REACTIONS (2)
  - CONDITION AGGRAVATED [None]
  - HAEMOLYTIC ANAEMIA [None]
